FAERS Safety Report 21591657 (Version 7)
Quarter: 2023Q2

REPORT INFORMATION
  Report Type: Report from Study
  Country: US (occurrence: US)
  Receive Date: 20221114
  Receipt Date: 20230602
  Transmission Date: 20230722
  Serious: Yes (Hospitalization, Other)
  Sender: FDA-Public Use
  Company Number: US-ABBVIE-22K-163-4487282-00

PATIENT
  Age: 65 Year
  Sex: Male
  Weight: 60 kg

DRUGS (5)
  1. IMBRUVICA [Suspect]
     Active Substance: IBRUTINIB
     Indication: Chronic lymphocytic leukaemia
     Route: 048
     Dates: start: 20171201, end: 20180514
  2. DOXYCYCLINE [Concomitant]
     Active Substance: DOXYCYCLINE
     Indication: Product used for unknown indication
  3. IMBRUVICA [Suspect]
     Active Substance: IBRUTINIB
     Indication: Chronic lymphocytic leukaemia
     Dosage: FORM STRENGTH: 140 MILLIGRAM; DISCONTINUED IN 2018
     Route: 048
     Dates: start: 20180514
  4. IMBRUVICA [Suspect]
     Active Substance: IBRUTINIB
     Indication: Chronic lymphocytic leukaemia
     Dosage: FORM STRENGTH: 420 MILLIGRAM
     Route: 048
     Dates: start: 20181231
  5. TAMSULOSIN [Concomitant]
     Active Substance: TAMSULOSIN
     Indication: Pollakiuria
     Route: 048
     Dates: start: 20210729

REACTIONS (15)
  - Localised infection [Not Recovered/Not Resolved]
  - Eye infection [Unknown]
  - Colon dysplasia [Unknown]
  - Fatigue [Not Recovered/Not Resolved]
  - Mucosal disorder [Unknown]
  - Nausea [Unknown]
  - Gastrointestinal carcinoma [Not Recovered/Not Resolved]
  - Skin infection [Unknown]
  - Onychoclasis [Not Recovered/Not Resolved]
  - Fatigue [Not Recovered/Not Resolved]
  - Oral mucosal blistering [Not Recovered/Not Resolved]
  - Nail disorder [Not Recovered/Not Resolved]
  - Oral mucosal blistering [Recovered/Resolved]
  - Laboratory test abnormal [Unknown]
  - Colon cancer [Unknown]

NARRATIVE: CASE EVENT DATE: 20180101
